FAERS Safety Report 11031633 (Version 1)
Quarter: 2015Q2

REPORT INFORMATION
  Report Type: Spontaneous
  Country: US (occurrence: US)
  Receive Date: 20150415
  Receipt Date: 20150415
  Transmission Date: 20150821
  Serious: No
  Sender: FDA-Public Use
  Company Number: US-SA-2014SA166707

PATIENT
  Age: 74 Year
  Sex: Female
  Weight: 71.39 kg

DRUGS (25)
  1. OXYBUTYNIN [Concomitant]
     Active Substance: OXYBUTYNIN
  2. COLACE [Concomitant]
     Active Substance: DOCUSATE SODIUM
     Dosage: 100 MG
     Route: 048
  3. AMBRISENTAN [Concomitant]
     Active Substance: AMBRISENTAN
     Dosage: TOTAL; 10 MG
     Route: 048
  4. LASIX [Concomitant]
     Active Substance: FUROSEMIDE
     Dosage: 40 MG
     Route: 048
  5. AMOXIL [Concomitant]
     Active Substance: AMOXICILLIN
     Route: 048
  6. PANTHENOL/RETINOL/THIAMINE HYDROCHLORIDE/ASCORBIC ACID/ERGOCALCIFEROL/FOLIC ACID/RIBOFLAVIN/NICOTINA [Concomitant]
     Route: 048
  7. MIRABEGRON [Concomitant]
     Active Substance: MIRABEGRON
  8. FERROUS SULFATE [Concomitant]
     Active Substance: FERROUS SULFATE\FERROUS SULFATE, DRIED
     Dosage: (65 FE), WITH BREAKFAST
     Route: 048
  9. PRAVACHOL [Concomitant]
     Active Substance: PRAVASTATIN SODIUM
     Route: 048
  10. ESTRACE [Concomitant]
     Active Substance: ESTRADIOL
     Dosage: 0.01 % VAGINAL CREAM;TOPICALLY THRICE A WEEK
  11. PLAVIX [Concomitant]
     Active Substance: CLOPIDOGREL BISULFATE
     Dosage: 75 MG
     Route: 048
  12. GLUCOPHAGE [Concomitant]
     Active Substance: METFORMIN HYDROCHLORIDE
     Dosage: 1000 MG
     Route: 048
  13. MIRALAX [Concomitant]
     Active Substance: POLYETHYLENE GLYCOL 3350
     Dosage: POWDER
     Route: 048
  14. DEMEROL [Suspect]
     Active Substance: MEPERIDINE HYDROCHLORIDE
     Route: 065
  15. CELEXA [Concomitant]
     Active Substance: CITALOPRAM HYDROBROMIDE
     Dosage: 10 MG TOTAL
     Route: 048
  16. PRINIVIL [Concomitant]
     Active Substance: LISINOPRIL
     Dosage: 2.5 MG 1 TAB AT BEDTIME
     Route: 048
  17. LOVAZA [Concomitant]
     Active Substance: OMEGA-3-ACID ETHYL ESTERS
     Route: 048
  18. IMODIUM A-D [Concomitant]
     Active Substance: LOPERAMIDE HYDROCHLORIDE
     Dosage: 2 MG TAB AT THE TIME OF EACH LOOSE STOOL
  19. ZESTRIL [Concomitant]
     Active Substance: LISINOPRIL
     Dosage: 2.5 MG AT BEDTIME
     Route: 048
  20. QUINIDINE/CINCHONINE/CINCHONIDINE/QUININE [Concomitant]
  21. ZYLOPRIM [Concomitant]
     Active Substance: ALLOPURINOL
     Dosage: 100 MG
     Route: 048
  22. ASPIRIN. [Concomitant]
     Active Substance: ASPIRIN
     Dosage: 325 MG TOTAL
     Route: 048
  23. QUININE SULFATE. [Concomitant]
     Active Substance: QUININE SULFATE
  24. BIFIDOBACTERIUM BIFIDUM/LACTOBACILLUS ACIDOPHILUS/LACTOBACILLUS BREVIS/LACTOBACILLUS CASEI [Concomitant]
     Route: 048
  25. ERGOCALCIFEROL. [Concomitant]
     Active Substance: ERGOCALCIFEROL
     Dosage: EVERY 30 DAYS DOSE:50000 UNIT(S)
     Route: 048

REACTIONS (1)
  - Drug hypersensitivity [Unknown]

NARRATIVE: CASE EVENT DATE: 20141202
